FAERS Safety Report 22628423 (Version 1)
Quarter: 2023Q2

REPORT INFORMATION
  Report Type: Spontaneous
  Country: US (occurrence: US)
  Receive Date: 20230622
  Receipt Date: 20230622
  Transmission Date: 20230722
  Serious: Yes (Other)
  Sender: FDA-Public Use
  Company Number: US-APOTEX-2023AP009168

PATIENT
  Age: 57 Year
  Sex: Male

DRUGS (4)
  1. DULOXETINE [Interacting]
     Active Substance: DULOXETINE
     Indication: Product used for unknown indication
     Dosage: UNK
     Route: 065
  2. ASPIRIN [Interacting]
     Active Substance: ASPIRIN
     Indication: Product used for unknown indication
     Dosage: UNK
     Route: 065
  3. ALCOHOL [Interacting]
     Active Substance: ALCOHOL
     Indication: Product used for unknown indication
     Dosage: UNK,
     Route: 065
  4. HERBALS\MITRAGYNINE [Interacting]
     Active Substance: HERBALS\MITRAGYNINE
     Indication: Drug abuse
     Dosage: UNK, IN 24 HOURS
     Route: 048

REACTIONS (5)
  - Drug abuse [Unknown]
  - Drug interaction [Unknown]
  - Aggression [Unknown]
  - Agitation [Unknown]
  - Myoclonus [Unknown]
